FAERS Safety Report 12882267 (Version 1)
Quarter: 2016Q4

REPORT INFORMATION
  Report Type: Spontaneous
  Country: JP (occurrence: JP)
  Receive Date: 20161025
  Receipt Date: 20161025
  Transmission Date: 20170207
  Serious: Yes (Other)
  Sender: FDA-Public Use
  Company Number: JP-CORDEN PHARMA LATINA S.P.A.-JP-2016COR000227

PATIENT
  Age: 27 Year
  Sex: Male

DRUGS (8)
  1. VINCRISTINE [Concomitant]
     Active Substance: VINCRISTINE
     Indication: TESTICULAR GERM CELL TUMOUR MIXED STAGE II
     Dosage: 4 CYCLES
  2. METHOTREXATE (METHOTREXATE SODIUM) [Concomitant]
     Active Substance: METHOTREXATE SODIUM
     Indication: TESTICULAR GERM CELL TUMOUR MIXED STAGE II
     Dosage: 4 CYCLES
  3. CISPLATIN. [Concomitant]
     Active Substance: CISPLATIN
     Indication: METASTASES TO LYMPH NODES
  4. ETOPOSIDE. [Suspect]
     Active Substance: ETOPOSIDE
     Indication: TESTICULAR GERM CELL TUMOUR MIXED STAGE II
     Dosage: 100 MG/M2, 4 CYCLES EVERY 3 WEEKS FOR DAYS 3, 4 AND 5
  5. METHOTREXATE (METHOTREXATE SODIUM) [Concomitant]
     Active Substance: METHOTREXATE SODIUM
     Indication: METASTASES TO LYMPH NODES
  6. ETOPOSIDE. [Suspect]
     Active Substance: ETOPOSIDE
     Indication: METASTASES TO LYMPH NODES
  7. CISPLATIN. [Concomitant]
     Active Substance: CISPLATIN
     Indication: TESTICULAR GERM CELL TUMOUR MIXED STAGE II
     Dosage: 4 CYCLES
  8. VINCRISTINE [Concomitant]
     Active Substance: VINCRISTINE
     Indication: METASTASES TO LYMPH NODES

REACTIONS (1)
  - Acute myeloid leukaemia [Recovered/Resolved]

NARRATIVE: CASE EVENT DATE: 200209
